FAERS Safety Report 9684831 (Version 2)
Quarter: 2013Q4

REPORT INFORMATION
  Report Type: Spontaneous
  Country: NL (occurrence: NL)
  Receive Date: 20131112
  Receipt Date: 20131115
  Transmission Date: 20140711
  Serious: Yes (Other)
  Sender: FDA-Public Use
  Company Number: NL-PFIZER INC-2013317445

PATIENT
  Age: 77 Year
  Sex: Female

DRUGS (1)
  1. XALATAN [Suspect]
     Indication: GLAUCOMA
     Dosage: UNK

REACTIONS (6)
  - Diplopia [Unknown]
  - Visual acuity reduced [Unknown]
  - Product formulation issue [Unknown]
  - Hand fracture [Unknown]
  - Fall [Unknown]
  - Periorbital contusion [Unknown]
